FAERS Safety Report 14021803 (Version 2)
Quarter: 2017Q4

REPORT INFORMATION
  Report Type: Report from Study
  Country: US (occurrence: US)
  Receive Date: 20170928
  Receipt Date: 20171214
  Transmission Date: 20180321
  Serious: Yes (Death)
  Sender: FDA-Public Use
  Company Number: US-CLOVIS ONCOLOGY-CLO-2017-000800

PATIENT
  Age: 54 Year
  Sex: Female

DRUGS (1)
  1. RUBRACA [Suspect]
     Active Substance: RUCAPARIB CAMSYLATE
     Indication: OVARIAN CANCER
     Dosage: 200 MG, BID
     Route: 048
     Dates: start: 20170717, end: 2017

REACTIONS (10)
  - Anxiety [Unknown]
  - Fatigue [Unknown]
  - Hypoaesthesia [Unknown]
  - Drug ineffective [Unknown]
  - Urinary tract infection [Unknown]
  - Constipation [Unknown]
  - Red blood cell count decreased [Unknown]
  - Underdose [Unknown]
  - Death [Fatal]
  - Headache [Unknown]

NARRATIVE: CASE EVENT DATE: 2017
